FAERS Safety Report 9580072 (Version 1)
Quarter: 2013Q4

REPORT INFORMATION
  Report Type: Report from Study
  Country: DE (occurrence: DE)
  Receive Date: 20131002
  Receipt Date: 20131002
  Transmission Date: 20140711
  Serious: Yes (Other)
  Sender: FDA-Public Use
  Company Number: DE-ROCHE-1283095

PATIENT
  Sex: 0

DRUGS (1)
  1. ALTEPLASE [Suspect]
     Indication: RUPTURED CEREBRAL ANEURYSM
     Route: 065

REACTIONS (3)
  - Haemorrhage [Unknown]
  - CNS ventriculitis [Unknown]
  - Meningitis [Unknown]
